FAERS Safety Report 20299628 (Version 1)
Quarter: 2022Q1

REPORT INFORMATION
  Report Type: Spontaneous
  Country: US (occurrence: US)
  Receive Date: 20220105
  Receipt Date: 20220105
  Transmission Date: 20220423
  Serious: No
  Sender: FDA-Public Use
  Company Number: CID000000000020558

PATIENT
  Sex: Female

DRUGS (1)
  1. PRAVASTATIN SODIUM [Suspect]
     Active Substance: PRAVASTATIN SODIUM
     Route: 065

REACTIONS (4)
  - Contraindicated product prescribed [Not Recovered/Not Resolved]
  - Contraindicated product administered [Not Recovered/Not Resolved]
  - Product dispensing error [Not Recovered/Not Resolved]
  - Hypersensitivity [Not Recovered/Not Resolved]
